FAERS Safety Report 9977840 (Version 1)
Quarter: 2014Q1

REPORT INFORMATION
  Report Type: Report from Study
  Country: US (occurrence: US)
  Receive Date: 20140306
  Receipt Date: 20140306
  Transmission Date: 20141002
  Serious: No
  Sender: FDA-Public Use
  Company Number: US-ABBVIE-13P-163-1161882-00

PATIENT
  Age: 47 Year
  Sex: Female
  Weight: 72.64 kg

DRUGS (5)
  1. HUMIRA [Suspect]
     Indication: RHEUMATOID ARTHRITIS
     Dates: start: 201305, end: 20131002
  2. MELOXICAM [Concomitant]
     Indication: RHEUMATOID ARTHRITIS
  3. PROTONIX [Concomitant]
     Indication: ABDOMINAL DISCOMFORT
  4. VICODIN [Concomitant]
     Indication: NECK PAIN
  5. LINZESS [Concomitant]
     Indication: IRRITABLE BOWEL SYNDROME

REACTIONS (2)
  - Drug ineffective [Not Recovered/Not Resolved]
  - Arthralgia [Not Recovered/Not Resolved]
